FAERS Safety Report 6646540-6 (Version None)
Quarter: 2010Q1

REPORT INFORMATION
  Report Type: 
  Country: None (occurrence: None)
  Receive Date: 20100323
  Receipt Date: 20100312
  Transmission Date: 20100710
  Serious: Yes (Hospitalization)
  Sender: FDA-Public Use
  Company Number: DE-MPIJNJ-2010-01537

PATIENT

DRUGS (2)
  1. VELCADE [Suspect]
     Indication: MULTIPLE MYELOMA
     Dosage: 2.6 MG, UNK
     Route: 042
     Dates: start: 20080812, end: 20080812
  2. ZOMETA [Concomitant]
     Indication: PLASMACYTOMA
     Dosage: 4 MG, UNK
     Route: 042
     Dates: start: 20071004, end: 20080812

REACTIONS (2)
  - ABDOMINAL PAIN UPPER [None]
  - CHOLELITHIASIS [None]
